FAERS Safety Report 8839929 (Version 1)
Quarter: 2012Q4

REPORT INFORMATION
  Report Type: Spontaneous
  Country: US (occurrence: None)
  Receive Date: 20121012
  Receipt Date: 20121012
  Transmission Date: 20130627
  Serious: Yes (Hospitalization, Other)
  Sender: FDA-Public Use
  Company Number: None

PATIENT
  Age: 53 Year
  Sex: Male
  Weight: 65.77 kg

DRUGS (2)
  1. TYLENOL WITH CODEINE [Suspect]
     Indication: HEADACHE
     Dosage: as needed
     Route: 048
     Dates: start: 20121007, end: 20121009
  2. FLU VACCINE [Suspect]
     Indication: PROPHYLAXIS
     Dosage: once im
     Route: 030
     Dates: start: 20121008, end: 20121008

REACTIONS (4)
  - Malaise [None]
  - Poor quality sleep [None]
  - Feeling abnormal [None]
  - Anxiety [None]
